FAERS Safety Report 7306304-7 (Version None)
Quarter: 2011Q1

REPORT INFORMATION
  Report Type: 
  Country: None (occurrence: None)
  Receive Date: 20110222
  Receipt Date: 20110216
  Transmission Date: 20110831
  Serious: Yes (Death, Hospitalization, Other)
  Sender: FDA-Public Use
  Company Number: PHHY2010JP86814

PATIENT
  Sex: Male

DRUGS (8)
  1. AFINITOR [Suspect]
     Dosage: 10 MG, DAILY
     Route: 048
     Dates: end: 20101113
  2. NORVASC [Concomitant]
     Dosage: 10 MG, UNK
     Route: 048
  3. OLMETEC [Concomitant]
     Dosage: 20 MG, UNK
     Route: 048
  4. AFINITOR [Suspect]
     Indication: METASTATIC RENAL CELL CARCINOMA
     Dosage: 10 MG, DAILY
     Route: 048
     Dates: start: 20100906, end: 20100927
  5. AFINITOR [Suspect]
     Dosage: 5 MG, UNK
     Route: 048
     Dates: start: 20101024
  6. ARTIST [Concomitant]
     Dosage: 10 MG, UNK
     Route: 048
  7. SUNITINIB MALATE [Concomitant]
     Indication: METASTATIC RENAL CELL CARCINOMA
     Dosage: UNK
     Route: 048
     Dates: start: 20100729, end: 20100811
  8. STOGAR [Concomitant]
     Dosage: 20 MG, UNK
     Route: 048

REACTIONS (3)
  - LUNG DISORDER [None]
  - METASTATIC RENAL CELL CARCINOMA [None]
  - NEOPLASM MALIGNANT [None]
